FAERS Safety Report 11823339 (Version 1)
Quarter: 2015Q4

REPORT INFORMATION
  Report Type: Spontaneous
  Country: NZ (occurrence: NZ)
  Receive Date: 20151210
  Receipt Date: 20151210
  Transmission Date: 20160305
  Serious: Yes (Death, Hospitalization, Disabling, Other)
  Sender: FDA-Public Use
  Company Number: NZ-ASTRAZENECA-2015SF19101

PATIENT
  Age: 76 Year
  Sex: Female

DRUGS (19)
  1. SPIRIVA [Concomitant]
     Active Substance: TIOTROPIUM BROMIDE MONOHYDRATE
  2. SYMBICORT [Concomitant]
     Active Substance: BUDESONIDE\FORMOTEROL FUMARATE DIHYDRATE
  3. CODEINE [Concomitant]
     Active Substance: CODEINE
  4. SPIRONOLACTONE. [Concomitant]
     Active Substance: SPIRONOLACTONE
  5. CLOPIDOGREL [Concomitant]
     Active Substance: CLOPIDOGREL BISULFATE
  6. PARACETAMOL [Concomitant]
     Active Substance: ACETAMINOPHEN
  7. FRUSEMIDE [Concomitant]
     Active Substance: FUROSEMIDE
  8. TICAGRELOR [Suspect]
     Active Substance: TICAGRELOR
     Indication: ACUTE CORONARY SYNDROME
     Route: 048
  9. ATORVASTATIN [Concomitant]
     Active Substance: ATORVASTATIN
  10. OXYCONTIN [Concomitant]
     Active Substance: OXYCODONE HYDROCHLORIDE
  11. BISOPROLOL [Concomitant]
     Active Substance: BISOPROLOL
  12. PANTOPRAZOLE [Concomitant]
     Active Substance: PANTOPRAZOLE SODIUM
  13. ACLASTA [Concomitant]
     Active Substance: ZOLEDRONIC ACID
  14. PREDNISONE. [Concomitant]
     Active Substance: PREDNISONE
  15. IBUPROFEN. [Concomitant]
     Active Substance: IBUPROFEN
  16. OXYBUTININ [Concomitant]
     Active Substance: OXYBUTYNIN\OXYBUTYNIN CHLORIDE
  17. FENTANYL. [Concomitant]
     Active Substance: FENTANYL
  18. FRUSEMIDE [Concomitant]
     Active Substance: FUROSEMIDE
  19. OXYNORM [Concomitant]
     Active Substance: OXYCODONE HYDROCHLORIDE

REACTIONS (8)
  - Gout [Fatal]
  - Acute myocardial infarction [Fatal]
  - Dyspnoea [Fatal]
  - Osteoarthritis [Fatal]
  - Chronic obstructive pulmonary disease [Fatal]
  - Therapy cessation [Unknown]
  - Productive cough [Fatal]
  - Back pain [Fatal]

NARRATIVE: CASE EVENT DATE: 201502
